FAERS Safety Report 25333273 (Version 5)
Quarter: 2025Q3

REPORT INFORMATION
  Report Type: Spontaneous
  Country: CN (occurrence: CN)
  Receive Date: 20250519
  Receipt Date: 20250730
  Transmission Date: 20251021
  Serious: Yes (Hospitalization, Other)
  Sender: AMGEN
  Company Number: CN-AMGEN-CHNSP2025095256

PATIENT
  Age: 72 Year
  Sex: Male
  Weight: 65 kg

DRUGS (4)
  1. XGEVA [Suspect]
     Active Substance: DENOSUMAB
     Indication: Metastases to bone
     Dosage: 120 MILLIGRAM, QMO
     Route: 058
     Dates: start: 20221130, end: 20250325
  2. TALAZOPARIB [Suspect]
     Active Substance: TALAZOPARIB
     Indication: Prostate cancer metastatic
     Dosage: UNK UNK, QD
     Route: 065
     Dates: start: 20230606, end: 20231010
  3. TALAZOPARIB [Suspect]
     Active Substance: TALAZOPARIB
     Route: 065
     Dates: start: 20231109
  4. ENZALUTAMIDE [Concomitant]
     Active Substance: ENZALUTAMIDE
     Indication: Prostate cancer metastatic
     Dosage: 160 MILLIGRAM, QD
     Route: 048
     Dates: start: 20230606

REACTIONS (4)
  - Osteomyelitis [Recovered/Resolved with Sequelae]
  - Cerebral ischaemia [Unknown]
  - Bone hypertrophy [Unknown]
  - Sinusitis [Unknown]

NARRATIVE: CASE EVENT DATE: 20250401
